FAERS Safety Report 5863713-0 (Version None)
Quarter: 2008Q3

REPORT INFORMATION
  Report Type: 
  Country: None (occurrence: None)
  Receive Date: 20080828
  Receipt Date: 20080818
  Transmission Date: 20090109
  Serious: Yes (Other)
  Sender: FDA-Public Use
  Company Number: US-JNJCH-2008021547

PATIENT
  Age: 70 Year
  Sex: Female
  Weight: 73.5 kg

DRUGS (1)
  1. VISINE L.R. [Suspect]
     Indication: DRY EYE
     Dosage: TEXT:2 DROPS PER EYE 1,2,3X A DAY FOR 1 DAY
     Route: 047
     Dates: start: 20080817, end: 20080817

REACTIONS (1)
  - APPLICATION SITE BURN [None]
